FAERS Safety Report 22010465 (Version 1)
Quarter: 2023Q1

REPORT INFORMATION
  Report Type: Spontaneous
  Country: US (occurrence: US)
  Receive Date: 20230220
  Receipt Date: 20230220
  Transmission Date: 20230418
  Serious: No
  Sender: FDA-Public Use
  Company Number: US-CSLP-27501273219-V12842511-7

PATIENT
  Age: 24 Year
  Sex: Male

DRUGS (2)
  1. ANTICOAGULANT SODIUM CITRATE [Suspect]
     Active Substance: SODIUM CITRATE
     Indication: Anticoagulant therapy
     Route: 050
     Dates: start: 20230128, end: 20230128
  2. SALINE [Concomitant]
     Active Substance: SODIUM CHLORIDE
     Indication: Product used for unknown indication
     Dates: start: 20230128, end: 20230128

REACTIONS (6)
  - Hypoaesthesia [Recovered/Resolved]
  - Muscle spasms [Recovered/Resolved]
  - Tetany [Recovered/Resolved]
  - Pain [Recovered/Resolved]
  - Movement disorder [Recovered/Resolved]
  - Paraesthesia [Recovered/Resolved]

NARRATIVE: CASE EVENT DATE: 20230128
